FAERS Safety Report 21385683 (Version 1)
Quarter: 2022Q3

REPORT INFORMATION
  Report Type: Spontaneous
  Country: DE (occurrence: DE)
  Receive Date: 20220928
  Receipt Date: 20220928
  Transmission Date: 20221026
  Serious: Yes (Death, Other)
  Sender: FDA-Public Use
  Company Number: DE-ALLERGAN-2230884US

PATIENT
  Sex: Female

DRUGS (2)
  1. BOTOX [Suspect]
     Active Substance: ONABOTULINUMTOXINA
     Indication: Hypertonic bladder
     Dosage: 100 UNITS, SINGLE
  2. BOTOX [Suspect]
     Active Substance: ONABOTULINUMTOXINA
     Indication: Bladder dysfunction

REACTIONS (11)
  - Intestinal ischaemia [Fatal]
  - Colitis ischaemic [Fatal]
  - Peritonitis [Fatal]
  - Gangrene [Unknown]
  - White blood cells urine positive [Unknown]
  - Red blood cells urine positive [Unknown]
  - Vomiting [Unknown]
  - Dysuria [Unknown]
  - Micturition urgency [Unknown]
  - Abdominal pain upper [Unknown]
  - Nausea [Unknown]
